FAERS Safety Report 26000689 (Version 1)
Quarter: 2025Q4

REPORT INFORMATION
  Report Type: Spontaneous
  Country: EU (occurrence: EU)
  Receive Date: 20251105
  Receipt Date: 20251105
  Transmission Date: 20260117
  Serious: Yes (Other)
  Sender: MYLAN
  Company Number: None

PATIENT
  Age: 60 Year
  Sex: Male
  Weight: 86 kg

DRUGS (2)
  1. KETOPROFEN [Suspect]
     Active Substance: KETOPROFEN
     Indication: Arthralgia
     Dosage: 100 MILLIGRAM, 1 TOTAL (SCORED EXTENDED-RELEASE TABLET)
     Dates: start: 20251014, end: 20251014
  2. RAMIPRIL [Suspect]
     Active Substance: RAMIPRIL
     Indication: Hypertension
     Dosage: 5 MILLIGRAM, QD
     Dates: end: 20251014

REACTIONS (1)
  - Angioedema [Recovered/Resolved]

NARRATIVE: CASE EVENT DATE: 20251014
